FAERS Safety Report 8918431 (Version 4)
Quarter: 2013Q4

REPORT INFORMATION
  Report Type: Spontaneous
  Country: US (occurrence: US)
  Receive Date: 20121120
  Receipt Date: 20131117
  Transmission Date: 20140711
  Serious: Yes (Hospitalization, Other)
  Sender: FDA-Public Use
  Company Number: US-ASTRAZENECA-2012SE26934

PATIENT
  Age: 68 Year
  Sex: Female
  Weight: 68 kg

DRUGS (19)
  1. NEXIUM [Suspect]
     Indication: GASTROOESOPHAGEAL REFLUX DISEASE
     Route: 048
     Dates: start: 1998
  2. NEXIUM [Suspect]
     Indication: GASTROOESOPHAGEAL REFLUX DISEASE
     Route: 048
  3. NEXIUM [Suspect]
     Indication: GASTROOESOPHAGEAL REFLUX DISEASE
     Route: 048
  4. NEXIUM [Suspect]
     Indication: GASTROOESOPHAGEAL REFLUX DISEASE
     Route: 048
  5. METFORMIN [Concomitant]
     Indication: DIABETES MELLITUS
     Route: 048
     Dates: start: 2003
  6. MAGNESIUM OXIDE [Concomitant]
     Indication: CARDIAC DISORDER
     Route: 048
     Dates: start: 2013
  7. LASIX [Concomitant]
     Indication: FLUID RETENTION
     Route: 048
     Dates: start: 2013
  8. ASPIRIN [Concomitant]
     Indication: THROMBOSIS PROPHYLAXIS
     Route: 048
  9. HYDRALAZINE [Concomitant]
     Indication: BLOOD PRESSURE ABNORMAL
     Route: 048
     Dates: start: 2012
  10. AMIODARONE HCL [Concomitant]
     Indication: BLOOD PRESSURE ABNORMAL
     Route: 048
     Dates: start: 2012
  11. METOPROLOL [Concomitant]
     Indication: BLOOD PRESSURE ABNORMAL
     Route: 048
     Dates: start: 2012
  12. ALLOPURINOL [Concomitant]
     Indication: BLOOD PRESSURE ABNORMAL
     Route: 048
     Dates: start: 2012
  13. SPIROLACTONE [Concomitant]
     Indication: BLOOD PRESSURE ABNORMAL
     Route: 048
     Dates: start: 2012
  14. ATORVASTATIN [Concomitant]
     Indication: BLOOD CHOLESTEROL ABNORMAL
     Route: 048
     Dates: start: 2012
  15. LOSARTAN POTASSIUM [Concomitant]
     Indication: BLOOD PRESSURE ABNORMAL
     Route: 048
     Dates: start: 2012
  16. CLONIDINE [Concomitant]
     Indication: BLOOD PRESSURE ABNORMAL
     Route: 061
     Dates: end: 20131104
  17. CYMBALTA [Concomitant]
     Indication: BONE PAIN
     Route: 048
     Dates: start: 2010
  18. WARFARIN [Concomitant]
     Indication: BLOOD DISORDER
     Route: 048
     Dates: start: 2012
  19. WARFARIN [Concomitant]
     Indication: BLOOD DISORDER
     Route: 048
     Dates: start: 2012

REACTIONS (9)
  - Cardiac disorder [Unknown]
  - Hypertension [Not Recovered/Not Resolved]
  - Pulmonary oedema [Unknown]
  - Malaise [Unknown]
  - Diabetes mellitus [Unknown]
  - Musculoskeletal chest pain [Unknown]
  - Back pain [Not Recovered/Not Resolved]
  - Intentional drug misuse [Unknown]
  - Drug dose omission [Not Recovered/Not Resolved]
